FAERS Safety Report 24736654 (Version 1)
Quarter: 2024Q4

REPORT INFORMATION
  Report Type: Spontaneous
  Country: JP (occurrence: JP)
  Receive Date: 20241216
  Receipt Date: 20241216
  Transmission Date: 20250115
  Serious: Yes (Hospitalization, Other)
  Sender: MERCK
  Company Number: JP-ONO-2024JP025332

PATIENT
  Age: 77 Year
  Sex: Male
  Weight: 47.5 kg

DRUGS (14)
  1. SITAGLIPTIN [Suspect]
     Active Substance: SITAGLIPTIN
     Indication: Type 2 diabetes mellitus
     Dosage: 100 MG, EVERYDAY
     Route: 048
     Dates: start: 20240501, end: 20240515
  2. JANUVIA [Suspect]
     Active Substance: SITAGLIPTIN PHOSPHATE
     Indication: Diabetes mellitus
     Dosage: 50 MG, EVERYDAY
     Route: 048
     Dates: start: 20140320, end: 20170117
  3. JANUVIA [Suspect]
     Active Substance: SITAGLIPTIN PHOSPHATE
     Dosage: 100 MG, EVERYDAY
     Route: 048
     Dates: start: 20170118, end: 20240430
  4. CARBOPLATIN [Suspect]
     Active Substance: CARBOPLATIN
     Dosage: UNK
     Route: 065
     Dates: end: 20240521
  5. PACLITAXEL [Suspect]
     Active Substance: PACLITAXEL
     Dosage: UNK
     Route: 065
     Dates: end: 20240521
  6. METFORMIN HYDROCHLORIDE [Concomitant]
     Active Substance: METFORMIN HYDROCHLORIDE
     Dosage: UNK
     Route: 048
  7. ASPIRIN [Concomitant]
     Active Substance: ASPIRIN
     Dosage: UNK; FORM: ENTERIC TABLET
     Route: 048
  8. LANSOPRAZOLE OD CHEMIPHAR [Concomitant]
     Dosage: 30 MG
     Route: 048
     Dates: start: 20141031, end: 20240516
  9. LANSOPRAZOLE OD CHEMIPHAR [Concomitant]
     Dosage: UNK
     Route: 048
     Dates: start: 20240525
  10. BISOPROLOL [Concomitant]
     Active Substance: BISOPROLOL
     Dosage: UNK
     Route: 048
  11. ROSUVASTATIN CALCIUM [Concomitant]
     Active Substance: ROSUVASTATIN CALCIUM
     Dosage: UNK
     Route: 048
  12. IPRAGLIFLOZIN L-PROLINE [Concomitant]
     Active Substance: IPRAGLIFLOZIN L-PROLINE
     Dosage: UNK
     Route: 048
  13. JARDIANCE [Concomitant]
     Active Substance: EMPAGLIFLOZIN
     Dosage: 10 MG, EVERYDAY
     Route: 048
     Dates: start: 20240501
  14. VOGLIBOSE [Concomitant]
     Active Substance: VOGLIBOSE
     Indication: Blood glucose increased
     Dosage: 0.2 MG, Q8H
     Route: 048
     Dates: start: 20240517

REACTIONS (3)
  - Erythema multiforme [Recovering/Resolving]
  - Pemphigoid [Recovering/Resolving]
  - Anaphylactic reaction [Unknown]

NARRATIVE: CASE EVENT DATE: 20240521
